FAERS Safety Report 12341903 (Version 1)
Quarter: 2016Q2

REPORT INFORMATION
  Report Type: Spontaneous
  Country: IN (occurrence: IN)
  Receive Date: 20160506
  Receipt Date: 20160506
  Transmission Date: 20160815
  Serious: Yes (Death)
  Sender: FDA-Public Use
  Company Number: IN-VALIDUS PHARMACEUTICALS LLC-IN-2016VAL001418

PATIENT

DRUGS (4)
  1. GENTAMICIN. [Suspect]
     Active Substance: GENTAMICIN
     Indication: SEPSIS
  2. CEFOTAXIME SODIUM [Suspect]
     Active Substance: CEFOTAXIME SODIUM
     Indication: SERRATIA INFECTION
     Dosage: UNK
     Dates: start: 2015, end: 2015
  3. CEFOTAXIME SODIUM [Suspect]
     Active Substance: CEFOTAXIME SODIUM
     Indication: SEPSIS
  4. GENTAMICIN. [Suspect]
     Active Substance: GENTAMICIN
     Indication: SERRATIA INFECTION
     Dosage: UNK
     Dates: start: 2015, end: 2015

REACTIONS (4)
  - Drug ineffective [Fatal]
  - Sepsis [Fatal]
  - Serratia infection [Fatal]
  - Condition aggravated [Fatal]

NARRATIVE: CASE EVENT DATE: 2015
